FAERS Safety Report 4721213-5 (Version None)
Quarter: 2005Q3

REPORT INFORMATION
  Report Type: 
  Country: None (occurrence: None)
  Receive Date: 20050720
  Receipt Date: 20050711
  Transmission Date: 20060218
  Serious: Yes (Hospitalization, Other)
  Sender: FDA-Public Use
  Company Number: 2005BH000718

PATIENT
  Age: 58 Year
  Weight: 50 kg

DRUGS (3)
  1. DIANEAL [Suspect]
     Indication: RENAL FAILURE CHRONIC
     Dosage: 2000 ML; 2X A DAY; IP
     Route: 033
     Dates: start: 20040611
  2. DIANEAL PD4 AMBU-FLEX [Concomitant]
  3. EXTRANEAL [Concomitant]

REACTIONS (4)
  - ABDOMINAL PAIN [None]
  - CONVULSION [None]
  - PERITONITIS [None]
  - PHARMACEUTICAL PRODUCT COMPLAINT [None]
